FAERS Safety Report 9848204 (Version 1)
Quarter: 2013Q4

REPORT INFORMATION
  Report Type: Spontaneous
  Country: US (occurrence: None)
  Receive Date: 20131223
  Receipt Date: 20131223
  Transmission Date: 20140711
  Serious: No
  Sender: FDA-Public Use
  Company Number: 1000050931

PATIENT
  Age: 75 Year
  Sex: Male

DRUGS (1)
  1. LINZESS [Suspect]
     Dosage: 1 PILL, ORAL
     Route: 048

REACTIONS (1)
  - Diarrhoea [None]
